FAERS Safety Report 12516892 (Version 1)
Quarter: 2016Q2

REPORT INFORMATION
  Report Type: Spontaneous
  Country: US (occurrence: US)
  Receive Date: 20160630
  Receipt Date: 20160630
  Transmission Date: 20160815
  Serious: Yes (Other)
  Sender: FDA-Public Use
  Company Number: US-AUROBINDO-AUR-APL-2016-08416

PATIENT
  Age: 17 Year
  Sex: Male

DRUGS (2)
  1. PIRACETAM [Suspect]
     Active Substance: PIRACETAM
     Indication: SUPPLEMENTATION THERAPY
     Dosage: UNK
     Route: 065
  2. FLUOXETINE [Suspect]
     Active Substance: FLUOXETINE HYDROCHLORIDE
     Indication: OBSESSIVE-COMPULSIVE DISORDER
     Dosage: UNK
     Route: 065

REACTIONS (3)
  - Condition aggravated [Recovering/Resolving]
  - Paranoia [Recovering/Resolving]
  - Akathisia [Recovering/Resolving]
